FAERS Safety Report 12799457 (Version 1)
Quarter: 2016Q3

REPORT INFORMATION
  Report Type: Spontaneous
  Country: IT (occurrence: IT)
  Receive Date: 20160930
  Receipt Date: 20160930
  Transmission Date: 20161109
  Serious: Yes (Other)
  Sender: FDA-Public Use
  Company Number: IT-JNJFOC-20160928241

PATIENT
  Age: 9 Year
  Sex: Male

DRUGS (1)
  1. VERMOX [Suspect]
     Active Substance: MEBENDAZOLE
     Indication: ACCIDENTAL EXPOSURE TO PRODUCT
     Route: 065
     Dates: start: 20160927, end: 20160927

REACTIONS (2)
  - Wrong drug administered [Unknown]
  - Accidental exposure to product by child [Unknown]

NARRATIVE: CASE EVENT DATE: 20160927
